FAERS Safety Report 6152070-0 (Version None)
Quarter: 2009Q2

REPORT INFORMATION
  Report Type: 
  Country: None (occurrence: None)
  Receive Date: 20090409
  Receipt Date: 20090409
  Transmission Date: 20091009
  Serious: Yes (Hospitalization)
  Sender: FDA-Public Use
  Company Number: None

PATIENT
  Age: 81 Year
  Sex: Male
  Weight: 91.7 kg

DRUGS (2)
  1. SPIRONOLACTONE [Suspect]
     Dosage: 25 MG EVERY DAY PO
     Route: 048
     Dates: start: 20050906, end: 20090403
  2. TRIAMTERENE [Suspect]
     Dosage: 100 MG EVERY DAY PO
     Route: 048
     Dates: start: 20090129, end: 20090403

REACTIONS (3)
  - ANOREXIA [None]
  - HYPERKALAEMIA [None]
  - MUSCULAR WEAKNESS [None]
